FAERS Safety Report 23499064 (Version 7)
Quarter: 2025Q3

REPORT INFORMATION
  Report Type: Report from Study
  Country: US (occurrence: US)
  Receive Date: 20240208
  Receipt Date: 20250929
  Transmission Date: 20251021
  Serious: Yes (Death, Other)
  Sender: NOVARTIS
  Company Number: US-002147023-NVSC2024US007251

PATIENT
  Age: 62 Year
  Sex: Female

DRUGS (1)
  1. KESIMPTA [Suspect]
     Active Substance: OFATUMUMAB
     Indication: Multiple sclerosis
     Route: 058
     Dates: start: 20231219

REACTIONS (14)
  - Death [Fatal]
  - Multiple sclerosis [Unknown]
  - Dysstasia [Unknown]
  - Gastritis [Unknown]
  - Diarrhoea [Unknown]
  - Stress [Unknown]
  - Laboratory test abnormal [Unknown]
  - Eating disorder [Unknown]
  - Vomiting [Unknown]
  - Abdominal discomfort [Unknown]
  - Hepatic steatosis [Unknown]
  - Headache [Unknown]
  - Pruritus [Unknown]
  - Injection site warmth [Unknown]

NARRATIVE: CASE EVENT DATE: 20231219
